FAERS Safety Report 9058350 (Version 3)
Quarter: 2013Q3

REPORT INFORMATION
  Report Type: Spontaneous
  Country: US (occurrence: None)
  Receive Date: 20130118
  Receipt Date: 20130718
  Transmission Date: 20140515
  Serious: Yes (Hospitalization)
  Sender: FDA-Public Use
  Company Number: CIO13001636

PATIENT
  Age: 77 Year
  Sex: 0
  Weight: 89.8 kg

DRUGS (10)
  1. ZZZQUIL NIGHTIME SLEEP-AID [Suspect]
     Indication: INSOMNIA
     Dosage: 2 TBSP, BEDTIME FOR 2 OR 3 DAYS
     Route: 048
     Dates: start: 201210, end: 201211
  2. CLONIDINE [Concomitant]
  3. ATENOLOL (ATENOLOL) [Concomitant]
  4. SIMVASTATIN (SIMVASTATIN) [Concomitant]
  5. ALLOPURINOL [Concomitant]
  6. AMLODIPINE BESYLATE (AMLODIPINE BESILATE) [Concomitant]
  7. ASPIRIN (ACETYLSALICYLIC ACID) [Concomitant]
  8. FUROSEMIDE (FUROSEMIDE) [Concomitant]
  9. SPIRONOLACTONE (SPIRONOLACTONE) [Concomitant]
  10. OXYBUTYNIN (OXYBUTYNIN) [Concomitant]

REACTIONS (7)
  - Blood pressure increased [None]
  - Incoherent [None]
  - Abasia [None]
  - Dysphonia [None]
  - Cardiac failure [None]
  - Amnesia [None]
  - Cerebrovascular accident [None]
